FAERS Safety Report 14625995 (Version 3)
Quarter: 2018Q2

REPORT INFORMATION
  Report Type: Spontaneous
  Country: US (occurrence: US)
  Receive Date: 20180312
  Receipt Date: 20180621
  Transmission Date: 20180711
  Serious: No
  Sender: FDA-Public Use
  Company Number: US-009507513-1803USA000612

PATIENT
  Age: 63 Year
  Sex: Female

DRUGS (4)
  1. SYNTHROID [Concomitant]
     Active Substance: LEVOTHYROXINE SODIUM
  2. CALCIUM CHLORIDE. [Concomitant]
     Active Substance: CALCIUM CHLORIDE
  3. INTRON A [Suspect]
     Active Substance: INTERFERON ALFA-2B
     Indication: THYROID CANCER
     Dosage: STRENGTH: 10 MU, DOSE: 18 MU, 3 TIMES A WEEK, MON, WED, FRI
     Route: 058
     Dates: start: 20180111
  4. THYROGEN [Concomitant]
     Active Substance: THYROTROPIN ALFA

REACTIONS (5)
  - Pruritus [Unknown]
  - Decreased appetite [Unknown]
  - Product use in unapproved indication [Unknown]
  - Influenza like illness [Not Recovered/Not Resolved]
  - Fatigue [Unknown]

NARRATIVE: CASE EVENT DATE: 2018
